FAERS Safety Report 21310481 (Version 2)
Quarter: 2022Q3

REPORT INFORMATION
  Report Type: Spontaneous
  Country: IR (occurrence: IR)
  Receive Date: 20220909
  Receipt Date: 20220915
  Transmission Date: 20221027
  Serious: Yes (Hospitalization, Other)
  Sender: FDA-Public Use
  Company Number: MY-ALKEM LABORATORIES LIMITED-MY-ALKEM-2022-09451

PATIENT
  Age: 15 Year
  Sex: Male

DRUGS (4)
  1. TRIAMCINOLONE ACETONIDE [Suspect]
     Active Substance: TRIAMCINOLONE ACETONIDE
     Indication: Vitrectomy
     Dosage: 40 MILLIGRAM PER MILLILITRE WAS INJECTED  BY 27G NEEDLE UNDER THE INFERIOR BULBAR TENON (SUSPENSION)
     Route: 050
  2. PREDNISOLONE [Concomitant]
     Active Substance: PREDNISOLONE
     Indication: Vitrectomy
     Dosage: 75 MILLIGRAM, QD (DAILY)  (PREDNISOLONE FORT 50, HAKIM CO, TEHRAN, IRAN)
     Route: 048
  3. BETAMETHASONE [Concomitant]
     Active Substance: BETAMETHASONE
     Indication: Vitrectomy
     Dosage: UNK, EVERY 4 HOURS (BETASONATE, SINADARU, TEHRAN, IRAN)
     Route: 061
  4. CHLORAMPHENICOL [Concomitant]
     Active Substance: CHLORAMPHENICOL
     Indication: Vitrectomy
     Dosage: UNK, TID CHLORAMPHENICOL (CHOLOBIOTIC, SINADARU, TEHRAN, IRAN)
     Route: 061

REACTIONS (2)
  - Conjunctival ulcer [Recovering/Resolving]
  - Scleritis [Recovering/Resolving]
